FAERS Safety Report 7749387-2 (Version None)
Quarter: 2011Q3

REPORT INFORMATION
  Report Type: 
  Country: None (occurrence: None)
  Receive Date: 20110914
  Receipt Date: 20110909
  Transmission Date: 20111222
  Serious: Yes (Disabling, Other)
  Sender: FDA-Public Use
  Company Number: US-PFIZER INC-2004110622

PATIENT
  Sex: Female
  Weight: 74.83 kg

DRUGS (8)
  1. FLONASE [Concomitant]
  2. CLARINEX [Concomitant]
     Dosage: 10 MG, 1X/DAY
  3. CELEBREX [Suspect]
     Indication: ARTHRITIS
     Dosage: 200 MG, 1X/DAY
     Route: 048
     Dates: start: 20041115
  4. ZOLOFT [Concomitant]
     Dosage: 50 MG, 1X/DAY
  5. PRAVACHOL [Concomitant]
     Dosage: UNK MG, UNK
  6. ZOLOFT [Concomitant]
     Dosage: 100 MG, 1X/DAY
     Dates: start: 20041028
  7. ADVIL LIQUI-GELS [Concomitant]
     Indication: HEADACHE
     Dosage: UNK, AS NEEDED
  8. DYAZIDE [Concomitant]
     Dosage: 37.5/25MG QD

REACTIONS (9)
  - RENAL IMPAIRMENT [None]
  - ASTHENIA [None]
  - MICTURITION URGENCY [None]
  - RENAL FAILURE [None]
  - BEDRIDDEN [None]
  - DYSURIA [None]
  - PAIN [None]
  - ACTIVITIES OF DAILY LIVING IMPAIRED [None]
  - BACK PAIN [None]
